FAERS Safety Report 7273090-9 (Version None)
Quarter: 2010Q4

REPORT INFORMATION
  Report Type: 
  Country: None (occurrence: None)
  Receive Date: 20101201
  Receipt Date: 20100503
  Transmission Date: 20110411
  Serious: Yes (Other)
  Sender: FDA-Public Use
  Company Number: 304773

PATIENT
  Age: 47 Year
  Sex: Male
  Weight: 99.8 kg

DRUGS (11)
  1. NOVOLOG [Suspect]
     Indication: TYPE 1 DIABETES MELLITUS
     Dosage: SEE IMAGE
     Route: 058
  2. NOVOLOG [Suspect]
  3. NOVOLOG [Suspect]
  4. NOVOLOG [Suspect]
  5. NOVOLOG [Suspect]
  6. NOVOLOG [Suspect]
  7. NOVOLOG [Suspect]
  8. NOVOLOG [Suspect]
  9. NOVOLOG [Suspect]
  10. NOVOLOG [Suspect]
  11. NOVOLOG [Suspect]

REACTIONS (3)
  - BLOOD GLUCOSE INCREASED [None]
  - DRUG INEFFECTIVE [None]
  - INCORRECT PRODUCT STORAGE [None]
